FAERS Safety Report 7389458-6 (Version None)
Quarter: 2011Q2

REPORT INFORMATION
  Report Type: 
  Country: None (occurrence: None)
  Receive Date: 20110401
  Receipt Date: 20110328
  Transmission Date: 20111010
  Serious: Yes (Hospitalization, Other)
  Sender: FDA-Public Use
  Company Number: US-JNJFOC-20100502920

PATIENT
  Sex: Male

DRUGS (2)
  1. CORTISONE [Suspect]
     Indication: BURSITIS
     Route: 050
  2. LEVOFLOXACIN [Suspect]
     Indication: RESPIRATORY TRACT INFECTION
     Route: 048

REACTIONS (3)
  - TENOSYNOVITIS STENOSANS [None]
  - TENDON RUPTURE [None]
  - JOINT EFFUSION [None]
